FAERS Safety Report 21838650 (Version 1)
Quarter: 2023Q1

REPORT INFORMATION
  Report Type: Spontaneous
  Country: US (occurrence: None)
  Receive Date: 20230108
  Receipt Date: 20230108
  Transmission Date: 20230417
  Serious: Yes (Other)
  Sender: FDA-Public Use
  Company Number: None

PATIENT
  Age: 5 Year
  Sex: Female

DRUGS (1)
  1. FLOVENT HFA [Suspect]
     Active Substance: FLUTICASONE PROPIONATE
     Indication: Asthma
     Dosage: OTHER STRENGTH : 2 BREATHES;?FREQUENCY : TWICE A DAY;?
     Route: 055
     Dates: start: 20221101

REACTIONS (11)
  - Anxiety [None]
  - Mood altered [None]
  - Irritability [None]
  - Impulsive behaviour [None]
  - Aggression [None]
  - Psychomotor hyperactivity [None]
  - Aggression [None]
  - Physical assault [None]
  - Crying [None]
  - Agitation [None]
  - Tic [None]

NARRATIVE: CASE EVENT DATE: 20221101
